FAERS Safety Report 20245818 (Version 1)
Quarter: 2021Q4

REPORT INFORMATION
  Report Type: Spontaneous
  Country: CA (occurrence: CA)
  Receive Date: 20211229
  Receipt Date: 20211229
  Transmission Date: 20220303
  Serious: Yes (Other)
  Sender: FDA-Public Use
  Company Number: None

PATIENT
  Age: 56 Year
  Sex: Female

DRUGS (4)
  1. METHOTREXATE [Suspect]
     Active Substance: METHOTREXATE
     Indication: Dermatitis exfoliative generalised
     Dosage: 1 EVERY 12 HOURS
     Route: 048
  2. ACYCLOVIR [Concomitant]
     Active Substance: ACYCLOVIR
     Indication: Dermatitis atopic
  3. LEUCOVORIN [Concomitant]
     Active Substance: LEUCOVORIN
     Indication: Dermatitis exfoliative generalised
     Dosage: FREQUENCY 1 EVERY 6 HOURS
     Route: 065
  4. PIPERACILLIN AND TAZOBACTAM [Concomitant]
     Active Substance: PIPERACILLIN SODIUM\TAZOBACTAM SODIUM
     Indication: Dermatitis atopic

REACTIONS (5)
  - Neutropenia [Recovered/Resolved]
  - Incorrect dose administered [Recovered/Resolved]
  - Pancytopenia [Recovered/Resolved]
  - Skin necrosis [Recovered/Resolved]
  - Off label use [Unknown]
